FAERS Safety Report 6503644-6 (Version None)
Quarter: 2009Q4

REPORT INFORMATION
  Report Type: 
  Country: None (occurrence: None)
  Receive Date: 20091217
  Receipt Date: 20091210
  Transmission Date: 20100525
  Serious: Yes (Other)
  Sender: FDA-Public Use
  Company Number: GB-TEVA-210854ISR

PATIENT
  Age: 16 Year
  Sex: Female
  Weight: 74 kg

DRUGS (4)
  1. RISPERIDONE [Suspect]
     Indication: PSYCHOTIC DISORDER
     Route: 048
     Dates: start: 20090922
  2. RISPERIDONE [Suspect]
     Route: 048
     Dates: start: 20090901
  3. RISPERIDONE [Suspect]
     Route: 048
     Dates: end: 20091015
  4. RISPERIDONE [Concomitant]

REACTIONS (2)
  - HEADACHE [None]
  - HYPERPROLACTINAEMIA [None]
